FAERS Safety Report 5518370-X (Version None)
Quarter: 2007Q4

REPORT INFORMATION
  Report Type: 
  Country: None (occurrence: None)
  Receive Date: 20071113
  Receipt Date: 20071029
  Transmission Date: 20080405
  Serious: Yes (Other)
  Sender: FDA-Public Use
  Company Number: GXKR2007IT09330

PATIENT
  Age: 37 Year
  Sex: Female

DRUGS (3)
  1. CLOSPORIN [Suspect]
     Indication: IMMUNOSUPPRESSION
     Dosage: 60 MG/DAY
  2. RITUXIMAB [Suspect]
     Indication: LYMPHOMA
     Dosage: 375 MG/M2, QW, INFUSION
  3. CORTICOSTEROIDS                (NO INGREDIENTS/SUBSTANCES) [Concomitant]

REACTIONS (6)
  - HEPATIC FAILURE [None]
  - HEPATITIS C [None]
  - HEPATITIS CHOLESTATIC [None]
  - LYMPHOPROLIFERATIVE DISORDER [None]
  - PNEUMONIA BACTERIAL [None]
  - RESPIRATORY FAILURE [None]
